FAERS Safety Report 19167516 (Version 1)
Quarter: 2021Q2

REPORT INFORMATION
  Report Type: Other
  Country: US (occurrence: US)
  Receive Date: 20210422
  Receipt Date: 20210422
  Transmission Date: 20210717
  Serious: Yes (Hospitalization, Other)
  Sender: FDA-Public Use
  Company Number: US-ROCHE-2811624

PATIENT
  Age: 33 Year
  Sex: Female
  Weight: 53.12 kg

DRUGS (2)
  1. OCREVUS [Suspect]
     Active Substance: OCRELIZUMAB
     Indication: MULTIPLE SCLEROSIS
     Dosage: DATE OF TREATMENT: 21/FEB/2019, 08/MAR/2019, 16/SEP/2019,
     Route: 042
  2. OCREVUS [Suspect]
     Active Substance: OCRELIZUMAB
     Route: 042

REACTIONS (7)
  - Hypoaesthesia [Unknown]
  - Diplopia [Unknown]
  - Muscular weakness [Unknown]
  - Gait disturbance [Unknown]
  - Clostridium difficile infection [Unknown]
  - Vision blurred [Unknown]
  - Infection [Unknown]

NARRATIVE: CASE EVENT DATE: 20200808
